APPROVED DRUG PRODUCT: ADENOSINE
Active Ingredient: ADENOSINE
Strength: 3MG/ML
Dosage Form/Route: INJECTABLE;INJECTION
Application: A078686 | Product #001 | TE Code: AP
Applicant: MYLAN LABORATORIES LTD
Approved: May 13, 2009 | RLD: No | RS: No | Type: RX